FAERS Safety Report 24429509 (Version 1)
Quarter: 2024Q4

REPORT INFORMATION
  Report Type: Spontaneous
  Country: FR (occurrence: FR)
  Receive Date: 20241012
  Receipt Date: 20241012
  Transmission Date: 20250115
  Serious: Yes (Hospitalization, Other)
  Sender: CELLTRION
  Company Number: None

PATIENT

DRUGS (2)
  1. RITUXIMAB [Suspect]
     Active Substance: RITUXIMAB
     Indication: Myelin oligodendrocyte glycoprotein antibody-associated disease
     Dosage: 1 DOSAGE FORM, EVERY 1 DAY
     Route: 042
     Dates: start: 20230613, end: 20230613
  2. ESOMEPRAZOLE MAGNESIUM [Suspect]
     Active Substance: ESOMEPRAZOLE MAGNESIUM
     Indication: Diarrhoea
     Dosage: 1 DOSAGE FORM, EVERY 1 DAY
     Route: 048
     Dates: start: 20230722, end: 20230818

REACTIONS (2)
  - Agranulocytosis [Recovered/Resolved]
  - Intentional product use issue [Unknown]

NARRATIVE: CASE EVENT DATE: 20230818
